FAERS Safety Report 11248269 (Version 1)
Quarter: 2015Q3

REPORT INFORMATION
  Report Type: Spontaneous
  Country: US (occurrence: None)
  Receive Date: 20150707
  Receipt Date: 20150707
  Transmission Date: 20151125
  Serious: Yes (Other)
  Sender: FDA-Public Use
  Company Number: None

PATIENT
  Age: 53 Year
  Sex: Male
  Weight: 111.4 kg

DRUGS (1)
  1. DIVALPROEX DELAYED RELEASE [Suspect]
     Active Substance: DIVALPROEX SODIUM
     Indication: SCHIZOAFFECTIVE DISORDER
     Dosage: 4 TABS Q AM
     Route: 048

REACTIONS (5)
  - Product substitution issue [None]
  - Abdominal pain upper [None]
  - Abdominal discomfort [None]
  - Eructation [None]
  - Treatment noncompliance [None]

NARRATIVE: CASE EVENT DATE: 20130408
